FAERS Safety Report 5087690-8 (Version None)
Quarter: 2006Q3

REPORT INFORMATION
  Report Type: 
  Country: None (occurrence: None)
  Receive Date: 20060824
  Receipt Date: 19970122
  Transmission Date: 20061208
  Serious: Yes (Disabling)
  Sender: FDA-Public Use
  Company Number: US-MERCK-97011581

PATIENT
  Age: 57 Year
  Sex: Female

DRUGS (11)
  1. CALCIUM (UNSPECIFIED) AND VITAMIN D (UNSPECIFIED) [Concomitant]
     Route: 065
  2. LANOXIN [Concomitant]
     Route: 065
  3. FOSAMAX [Suspect]
     Indication: OSTEOPOROSIS POSTMENOPAUSAL
     Route: 048
     Dates: start: 19970118, end: 20030101
  4. FOSAMAX [Suspect]
     Route: 048
     Dates: start: 20050101
  5. FOSAMAX [Suspect]
     Route: 048
  6. FOSAMAX [Suspect]
     Indication: BONE DENSITY DECREASED
     Route: 048
     Dates: start: 19970118, end: 20030101
  7. FOSAMAX [Suspect]
     Route: 048
     Dates: start: 20050101
  8. FOSAMAX [Suspect]
     Route: 048
  9. THYROXINE [Concomitant]
     Route: 065
  10. ZEBETA [Concomitant]
     Route: 065
  11. PRAVACHOL [Suspect]
     Route: 065

REACTIONS (13)
  - ARTHRALGIA [None]
  - BACK PAIN [None]
  - BONE PAIN [None]
  - EXOSTOSIS [None]
  - GASTROINTESTINAL DISORDER [None]
  - INAPPROPRIATE SCHEDULE OF DRUG ADMINISTRATION [None]
  - MASS [None]
  - MUSCULOSKELETAL CHEST PAIN [None]
  - NEURALGIA [None]
  - OESOPHAGEAL PAIN [None]
  - ORAL PAIN [None]
  - PAIN IN JAW [None]
  - STOMATITIS [None]
